FAERS Safety Report 25540623 (Version 2)
Quarter: 2025Q3

REPORT INFORMATION
  Report Type: Spontaneous
  Country: US (occurrence: US)
  Receive Date: 20250710
  Receipt Date: 20250828
  Transmission Date: 20251020
  Serious: Yes (Other)
  Sender: NEUROCRINE BIOSCIENCES
  Company Number: US-NEUROCRINE BIOSCIENCES INC.-2025NBI08749

PATIENT
  Age: 71 Year
  Sex: Male

DRUGS (18)
  1. INGREZZA [Suspect]
     Active Substance: VALBENAZINE DITOSYLATE
     Indication: Tardive dyskinesia
     Route: 065
     Dates: start: 20250522, end: 20250617
  2. LYBALVI [Concomitant]
     Active Substance: OLANZAPINE\SAMIDORPHAN L-MALATE
  3. LEXAPRO [Concomitant]
     Active Substance: ESCITALOPRAM OXALATE
  4. LAMICTAL XR [Concomitant]
     Active Substance: LAMOTRIGINE
  5. SEROQUEL [Concomitant]
     Active Substance: QUETIAPINE FUMARATE
  6. TRAZODONE [Concomitant]
     Active Substance: TRAZODONE HYDROCHLORIDE
  7. OZEMPIC [Concomitant]
     Active Substance: SEMAGLUTIDE
  8. SYNTHROID [Concomitant]
     Active Substance: LEVOTHYROXINE SODIUM
  9. PLAVIX [Concomitant]
     Active Substance: CLOPIDOGREL BISULFATE
  10. ROSUVASTATIN [Concomitant]
     Active Substance: ROSUVASTATIN
  11. METFORMIN [Concomitant]
     Active Substance: METFORMIN HYDROCHLORIDE
  12. ASPIRIN [Concomitant]
     Active Substance: ASPIRIN
  13. REPATHA [Concomitant]
     Active Substance: EVOLOCUMAB
  14. OMEPRAZOLE [Concomitant]
     Active Substance: OMEPRAZOLE
  15. METOPROLOL [Concomitant]
     Active Substance: METOPROLOL
  16. TRULICITY [Concomitant]
     Active Substance: DULAGLUTIDE
  17. VITAMIN C [Concomitant]
     Active Substance: ASCORBIC ACID
  18. VITAMIN B COMPLEX [Concomitant]
     Active Substance: CYANOCOBALAMIN\DEXPANTHENOL\NIACINAMIDE\PYRIDOXINE HYDROCHLORIDE\RIBOFLAVIN 5^-PHOSPHATE SODIUM\THIA

REACTIONS (2)
  - Road traffic accident [Recovered/Resolved]
  - Somnolence [Recovered/Resolved]
